FAERS Safety Report 13075411 (Version 4)
Quarter: 2017Q1

REPORT INFORMATION
  Report Type: Spontaneous
  Country: IT (occurrence: IT)
  Receive Date: 20161230
  Receipt Date: 20170118
  Transmission Date: 20170428
  Serious: Yes (Death, Hospitalization, Other)
  Sender: FDA-Public Use
  Company Number: IT-TEVA-724119ISR

PATIENT
  Age: 48 Year
  Sex: Female

DRUGS (2)
  1. MYCOPHENOLATE MOFETIL. [Suspect]
     Active Substance: MYCOPHENOLATE MOFETIL
     Indication: UNDIFFERENTIATED CONNECTIVE TISSUE DISEASE
     Dosage: 2000 MILLIGRAM DAILY;
     Route: 065
  2. PREDNISONE. [Suspect]
     Active Substance: PREDNISONE
     Indication: UNDIFFERENTIATED CONNECTIVE TISSUE DISEASE
     Dosage: 50 MILLIGRAM DAILY; 50 MG/DAY
     Route: 065

REACTIONS (8)
  - Multiple organ dysfunction syndrome [Fatal]
  - Hemiparesis [Unknown]
  - Altered state of consciousness [Unknown]
  - Pyrexia [Unknown]
  - Cerebral toxoplasmosis [Fatal]
  - Musculoskeletal stiffness [Unknown]
  - Death [Fatal]
  - Extensor plantar response [Unknown]
